FAERS Safety Report 24917397 (Version 1)
Quarter: 2025Q1

REPORT INFORMATION
  Report Type: Spontaneous
  Country: US (occurrence: None)
  Receive Date: 20250203
  Receipt Date: 20250203
  Transmission Date: 20250408
  Serious: No
  Sender: FDA-CTU
  Company Number: None

PATIENT
  Age: 58 Year
  Sex: Female
  Weight: 81 kg

DRUGS (5)
  1. ATORVASTATIN CALCIUM [Suspect]
     Active Substance: ATORVASTATIN CALCIUM
     Indication: Blood cholesterol increased
     Dosage: 1 TABLET AT BEDTIME?
     Route: 048
     Dates: start: 20250130, end: 20250131
  2. ESCITALOPRAM OXALATE [Concomitant]
     Active Substance: ESCITALOPRAM OXALATE
  3. LISINOPRIL [Concomitant]
     Active Substance: LISINOPRIL
  4. POTASSIUM [Concomitant]
     Active Substance: POTASSIUM
  5. CHLORTHALIDONE [Concomitant]
     Active Substance: CHLORTHALIDONE

REACTIONS (8)
  - Oropharyngeal pain [None]
  - Oropharyngeal pain [None]
  - Myalgia [None]
  - Arthralgia [None]
  - Muscle tightness [None]
  - Hot flush [None]
  - Dizziness [None]
  - Fatigue [None]

NARRATIVE: CASE EVENT DATE: 20250131
